FAERS Safety Report 6607512-0 (Version None)
Quarter: 2010Q1

REPORT INFORMATION
  Report Type: 
  Country: None (occurrence: None)
  Receive Date: 20100301
  Receipt Date: 20100216
  Transmission Date: 20100710
  Serious: Yes (Other)
  Sender: FDA-Public Use
  Company Number: PHEH2010US01773

PATIENT
  Sex: Male
  Weight: 107.3 kg

DRUGS (4)
  1. ZOMETA [Suspect]
     Indication: PROSTATE CANCER METASTATIC
     Dosage: 4 MG, QMO
     Route: 042
     Dates: start: 20070212, end: 20091210
  2. ANALGESICS [Concomitant]
  3. TAXOTERE [Concomitant]
  4. OXYCONTIN [Concomitant]
     Dosage: UNK, UNK
     Route: 048

REACTIONS (2)
  - ORAL DISORDER [None]
  - OSTEONECROSIS [None]
